FAERS Safety Report 8830796 (Version 1)
Quarter: 2012Q4

REPORT INFORMATION
  Report Type: 
  Country: US (occurrence: US)
  Receive Date: 20121009
  Receipt Date: 20121009
  Transmission Date: 20130627
  Serious: No
  Sender: FDA-Public Use
  Company Number: US-B.I. PHARMACEUTICALS,INC./RIDGEFIELD-2008-BP-08064BP

PATIENT
  Age: 90 None
  Sex: Female

DRUGS (8)
  1. CATAPRES TTS [Suspect]
     Indication: HYPERTENSION
     Dosage: 0.2 mg
     Route: 061
     Dates: start: 2002
  2. COZAAR [Concomitant]
  3. VERAPAMIL [Concomitant]
  4. FUROSEMIDE [Concomitant]
  5. GABAPENTIN [Concomitant]
  6. LIPITOR [Concomitant]
  7. RANITIDINE [Concomitant]
  8. ASA [Concomitant]
     Dosage: 81 mg

REACTIONS (8)
  - Blood pressure increased [Recovered/Resolved]
  - Application site erythema [Not Recovered/Not Resolved]
  - Application site pain [Not Recovered/Not Resolved]
  - Pruritus [Not Recovered/Not Resolved]
  - Rash [Not Recovered/Not Resolved]
  - Application site erythema [Not Recovered/Not Resolved]
  - Application site discomfort [Not Recovered/Not Resolved]
  - Nerve compression [Recovered/Resolved]
